FAERS Safety Report 10422902 (Version 3)
Quarter: 2014Q4

REPORT INFORMATION
  Report Type: Spontaneous
  Country: BR (occurrence: BR)
  Receive Date: 20140902
  Receipt Date: 20141017
  Transmission Date: 20150528
  Serious: Yes (Death, Other)
  Sender: FDA-Public Use
  Company Number: BR-AMGEN-BRASP2012003088

PATIENT
  Age: 53 Year
  Sex: Male
  Weight: 45 kg

DRUGS (5)
  1. ENBREL [Suspect]
     Active Substance: ETANERCEPT
     Indication: ANKYLOSING SPONDYLITIS
     Dosage: 50 MG, 1X/WEEK
     Route: 058
     Dates: start: 20101125, end: 201111
  2. ENBREL [Suspect]
     Active Substance: ETANERCEPT
     Dosage: 50 MG, QWK
     Route: 058
     Dates: start: 201111
  3. PARACETAMOL [Concomitant]
     Active Substance: ACETAMINOPHEN
     Dosage: UNK
  4. DEFLAZACORT [Concomitant]
     Active Substance: DEFLAZACORT
     Dosage: UNK
  5. CALCIUM [Concomitant]
     Active Substance: CALCIUM
     Dosage: UNK

REACTIONS (7)
  - Wrong technique in drug usage process [Unknown]
  - Sepsis [Fatal]
  - Injection site pain [Unknown]
  - Pain in extremity [Unknown]
  - Localised infection [Unknown]
  - Fall [Unknown]
  - Arthritis infective [Fatal]
